FAERS Safety Report 5357608-9 (Version None)
Quarter: 2007Q2

REPORT INFORMATION
  Report Type: 
  Country: None (occurrence: None)
  Receive Date: 20070614
  Receipt Date: 20070611
  Transmission Date: 20071010
  Serious: Yes (Hospitalization)
  Sender: FDA-Public Use
  Company Number: HK-BRISTOL-MYERS SQUIBB COMPANY-13798970

PATIENT
  Age: 51 Year
  Sex: Male

DRUGS (3)
  1. CETUXIMAB [Suspect]
     Indication: NASOPHARYNGEAL CANCER
     Dates: start: 20070523, end: 20070523
  2. CISPLATIN [Suspect]
     Indication: NASOPHARYNGEAL CANCER
     Dates: start: 20070523, end: 20070523
  3. RADIOTHERAPY [Suspect]
     Indication: NASOPHARYNGEAL CANCER

REACTIONS (1)
  - STOMATITIS [None]
